FAERS Safety Report 25547840 (Version 1)
Quarter: 2025Q3

REPORT INFORMATION
  Report Type: Spontaneous
  Country: US (occurrence: US)
  Receive Date: 20250714
  Receipt Date: 20250714
  Transmission Date: 20251021
  Serious: No
  Sender: ROCHE
  Company Number: US-ROCHE-10000328544

PATIENT
  Age: 33 Year
  Sex: Female
  Weight: 99.79 kg

DRUGS (12)
  1. XOLAIR [Suspect]
     Active Substance: OMALIZUMAB
     Indication: Mast cell activation syndrome
     Dosage: 2 OF 150MG SYRINGES, 1 SYRINGE IN THE BACK OF EACH ARM
     Route: 058
     Dates: start: 202502
  2. XOLAIR [Suspect]
     Active Substance: OMALIZUMAB
     Indication: Urticaria chronic
  3. LEVOTHYROXINE [Concomitant]
     Active Substance: LEVOTHYROXINE
     Indication: Hypothyroidism
     Route: 048
     Dates: start: 202502
  4. CETIRIZINE [Concomitant]
     Active Substance: CETIRIZINE HYDROCHLORIDE
     Indication: Urticaria chronic
     Route: 048
     Dates: start: 202410
  5. CETIRIZINE [Concomitant]
     Active Substance: CETIRIZINE HYDROCHLORIDE
     Indication: Mast cell activation syndrome
  6. SINGULAIR [Concomitant]
     Active Substance: MONTELUKAST SODIUM
     Indication: Urticaria chronic
     Route: 048
     Dates: start: 202411
  7. SINGULAIR [Concomitant]
     Active Substance: MONTELUKAST SODIUM
     Indication: Mast cell activation syndrome
  8. LORAZEPAM [Concomitant]
     Active Substance: LORAZEPAM
     Indication: Anxiety
     Dosage: AS NEEDED, UP TO 3 TIMES PER DAY
     Route: 048
  9. BACLOFEN [Concomitant]
     Active Substance: BACLOFEN
     Indication: Arthralgia
     Dosage: AS NEEDED, UP TO 3 TIMES PER DAY
     Route: 048
     Dates: start: 202505
  10. ZOFRAN [Concomitant]
     Active Substance: ONDANSETRON HYDROCHLORIDE
     Indication: Nausea
     Dosage: AS NEEDED, UP TO 4 TIMES PER DAY
     Route: 060
     Dates: start: 202505
  11. ZOFRAN [Concomitant]
     Active Substance: ONDANSETRON HYDROCHLORIDE
     Indication: Vomiting
     Route: 060
     Dates: start: 202309
  12. EPIPEN [Concomitant]
     Active Substance: EPINEPHRINE
     Indication: Anaphylactic reaction

REACTIONS (7)
  - Impaired gastric emptying [Not Recovered/Not Resolved]
  - Diverticulum intestinal [Not Recovered/Not Resolved]
  - Underdose [Not Recovered/Not Resolved]
  - Wrong technique in product usage process [Recovered/Resolved]
  - Inflammation [Unknown]
  - Needle issue [Unknown]
  - Syringe issue [Unknown]

NARRATIVE: CASE EVENT DATE: 20250501
